FAERS Safety Report 26153562 (Version 1)
Quarter: 2025Q4

REPORT INFORMATION
  Report Type: Spontaneous
  Country: JP (occurrence: JP)
  Receive Date: 20251214
  Receipt Date: 20251214
  Transmission Date: 20260117
  Serious: Yes (Other)
  Sender: EISAI
  Company Number: JP-Eisai-202511735_LEN_P_1

PATIENT
  Age: 67 Year
  Sex: Female

DRUGS (2)
  1. LENVATINIB [Suspect]
     Active Substance: LENVATINIB
     Indication: Papillary thyroid cancer
     Dosage: FREQUENCY UNKNOWN
     Route: 048
  2. LENVATINIB [Suspect]
     Active Substance: LENVATINIB
     Dosage: DOSE AND FREQUENCY UNKNOWN
     Route: 048

REACTIONS (4)
  - Cerebral infarction [Unknown]
  - Hypertension [Unknown]
  - Proteinuria [Unknown]
  - Renal disorder [Unknown]
